FAERS Safety Report 4586621-4 (Version None)
Quarter: 2005Q1

REPORT INFORMATION
  Report Type: 
  Country: None (occurrence: None)
  Receive Date: 20050218
  Receipt Date: 20040726
  Transmission Date: 20050727
  Serious: No
  Sender: FDA-Public Use
  Company Number: US-BRISTOL-MYERS SQUIBB COMPANY-12652475

PATIENT

DRUGS (2)
  1. TAXOL [Suspect]
     Route: 042
  2. PARAPLATIN [Suspect]
     Route: 042

REACTIONS (1)
  - URTICARIA [None]
